FAERS Safety Report 19275582 (Version 1)
Quarter: 2021Q2

REPORT INFORMATION
  Report Type: Spontaneous
  Country: US (occurrence: US)
  Receive Date: 20210519
  Receipt Date: 20210519
  Transmission Date: 20210717
  Serious: Yes (Hospitalization, Other)
  Sender: FDA-Public Use
  Company Number: US-GILEAD-2021-0529978

PATIENT
  Age: 63 Year
  Sex: Male

DRUGS (2)
  1. EPCLUSA [Suspect]
     Active Substance: SOFOSBUVIR\VELPATASVIR
     Indication: CHRONIC HEPATITIS C
     Dosage: 1 DOSAGE FORM, QD
     Route: 048
     Dates: end: 20210503
  2. ENSURE [NUTRIENTS NOS] [Concomitant]

REACTIONS (7)
  - Pain in extremity [Recovered/Resolved]
  - Fatigue [Recovered/Resolved]
  - Pharyngitis streptococcal [Recovered/Resolved]
  - Pneumonia [Recovered/Resolved]
  - Bone pain [Recovered/Resolved]
  - Constipation [Recovered/Resolved]
  - Headache [Recovered/Resolved]

NARRATIVE: CASE EVENT DATE: 20210501
